FAERS Safety Report 13621098 (Version 2)
Quarter: 2017Q3

REPORT INFORMATION
  Report Type: Spontaneous
  Country: US (occurrence: US)
  Receive Date: 20170607
  Receipt Date: 20170904
  Transmission Date: 20171127
  Serious: No
  Sender: FDA-Public Use
  Company Number: US-TEVA-772334ACC

PATIENT
  Sex: Female

DRUGS (2)
  1. PROPAFENONE ER [Suspect]
     Active Substance: PROPAFENONE
     Indication: HEART RATE INCREASED
     Dates: start: 20170318, end: 20170523
  2. ADVIL [Concomitant]
     Active Substance: IBUPROFEN

REACTIONS (5)
  - Terminal insomnia [Unknown]
  - Product substitution issue [None]
  - Therapeutic response shortened [None]
  - Heart rate increased [Recovered/Resolved with Sequelae]
  - Drug effect incomplete [Unknown]
